FAERS Safety Report 5911489-0 (Version None)
Quarter: 2008Q4

REPORT INFORMATION
  Report Type: 
  Country: None (occurrence: None)
  Receive Date: 20081002
  Receipt Date: 20080919
  Transmission Date: 20090506
  Serious: Yes (Other)
  Sender: FDA-Public Use
  Company Number: DSU-2008-01224

PATIENT
  Age: 86 Year
  Sex: Female
  Weight: 117.4816 kg

DRUGS (9)
  1. AZOR [Suspect]
     Indication: HYPERTENSION
     Dosage: 5/40 MG (QD), PER ORAL
     Route: 048
     Dates: start: 20080414, end: 20080618
  2. METOPROLOL TARTRATE (METOPROLOL TARTRATE) (50 MILLIGRAM, TABLET) (METO [Concomitant]
  3. LEVOTHYROXINE (LEVOTHYROXINE) (75 MICROGRAM, TABLET) (LEVOTHYROXINE) [Concomitant]
  4. CALTRATE (CALCIUM CARBONATE) (600 MILLIGRAM, TABLET) (CALCIUM CARBONAT [Concomitant]
  5. VITAMIN B12 (CYANOCOBALAMIN) (CYANOCOBALAMIN) [Concomitant]
  6. MULTIVITAMIN (ERGOCALCIFEROL, ASCORBIC ACID, FOLIC ACID, THIAMINE HYDR [Concomitant]
  7. HYCODAN ORAL SYRUP (HOMATROPINE METHYLBROMIDE, HYDROCODONE BITARTRATE) [Concomitant]
  8. DIOVAN HCT (HYDROCHLOROTHIAZIDE, VALSARTAN) (TABLET) (HYDROCHLOROTHIAZ [Concomitant]
  9. LASIX (FUROSEMIDE) (20 MILLIGRAM, TABLET) (FUROSEMIDE) [Concomitant]

REACTIONS (1)
  - BLOOD PRESSURE DECREASED [None]
